FAERS Safety Report 25609472 (Version 2)
Quarter: 2025Q3

REPORT INFORMATION
  Report Type: Spontaneous
  Country: US (occurrence: US)
  Receive Date: 20250727
  Receipt Date: 20250818
  Transmission Date: 20251020
  Serious: No
  Sender: BAUSCH AND LOMB
  Company Number: US-BAUSCHBL-2025BNL012998

PATIENT
  Sex: Female

DRUGS (1)
  1. OPCON-A [Suspect]
     Active Substance: NAPHAZOLINE HYDROCHLORIDE\PHENIRAMINE MALEATE
     Indication: Eye pruritus
     Route: 047
     Dates: end: 20250721

REACTIONS (5)
  - Eye pain [Recovered/Resolved]
  - Dry eye [Recovered/Resolved]
  - Burning sensation [Recovered/Resolved]
  - Product quality issue [Unknown]
  - Intentional product use issue [Unknown]
